FAERS Safety Report 9607524 (Version 1)
Quarter: 2013Q4

REPORT INFORMATION
  Report Type: Spontaneous
  Country: FR (occurrence: None)
  Receive Date: 20131004
  Receipt Date: 20131004
  Transmission Date: 20140711
  Serious: Yes (Hospitalization)
  Sender: FDA-Public Use
  Company Number: 1922688

PATIENT
  Age: 59 Year
  Sex: Female

DRUGS (2)
  1. CARBOPLATIN [Suspect]
     Indication: OVARIAN CANCER
     Dosage: 400 MG MILLIGRAM(S)
     Route: 041
     Dates: start: 20110727, end: 20110727
  2. POLARAMINE [Concomitant]

REACTIONS (4)
  - Chest discomfort [None]
  - Hot flush [None]
  - Erythema [None]
  - Vomiting [None]
